FAERS Safety Report 21351198 (Version 4)
Quarter: 2022Q4

REPORT INFORMATION
  Report Type: Spontaneous
  Country: US (occurrence: US)
  Receive Date: 20220919
  Receipt Date: 20221025
  Transmission Date: 20230112
  Serious: No
  Sender: FDA-Public Use
  Company Number: US-PFIZER INC-202201170183

PATIENT
  Sex: Female

DRUGS (1)
  1. ATORVASTATIN [Suspect]
     Active Substance: ATORVASTATIN
     Indication: Product used for unknown indication
     Dosage: UNK
     Route: 065

REACTIONS (5)
  - Middle insomnia [Recovered/Resolved]
  - Pain [Recovered/Resolved]
  - Pain in extremity [Recovered/Resolved]
  - Myalgia [Recovered/Resolved]
  - Drug ineffective [Recovered/Resolved]
